FAERS Safety Report 15886618 (Version 1)
Quarter: 2019Q1

REPORT INFORMATION
  Report Type: Spontaneous
  Country: FR (occurrence: FR)
  Receive Date: 20190129
  Receipt Date: 20190129
  Transmission Date: 20190417
  Serious: Yes (Hospitalization)
  Sender: FDA-Public Use
  Company Number: FR-TEVA-2019-FR-1003877

PATIENT
  Age: 80 Year
  Sex: Male
  Weight: 85 kg

DRUGS (15)
  1. TRAMADOL. [Suspect]
     Active Substance: TRAMADOL
     Indication: SCIATICA
     Dosage: 300 MILLIGRAM DAILY;
     Route: 048
     Dates: start: 20181211, end: 20181219
  2. ELIQUIS [Concomitant]
     Active Substance: APIXABAN
     Dosage: 10 MILLIGRAM DAILY;
     Route: 048
     Dates: end: 20181224
  3. LANSOPRAZOLE MYLAN 30 MG, COMPRIM? ORODISPERSIBLE [Concomitant]
     Active Substance: LANSOPRAZOLE
     Dosage: 30 MILLIGRAM DAILY;
     Route: 048
  4. CORDARONE [Concomitant]
     Active Substance: AMIODARONE HYDROCHLORIDE
     Dosage: 100 MILLIGRAM DAILY;
     Route: 048
  5. ROSUVASTATINE MYLAN 5 MG, COMPRIM? PELLICUL? [Concomitant]
     Dosage: 5 MILLIGRAM DAILY;
     Route: 048
     Dates: end: 20181223
  6. CANDESARTAN SANDOZ 8 MG, COMPRIM? S?CABLE [Concomitant]
     Dosage: 32 MILLIGRAM DAILY;
     Route: 048
     Dates: end: 20181224
  7. DESLORATADINE. [Concomitant]
     Active Substance: DESLORATADINE
     Dosage: 1 DOSAGE FORMS DAILY;
     Route: 048
     Dates: end: 20181221
  8. MONOPROST 50 MICROGRAMMES/ML, COLLYRE EN SOLUTION EN R?CIPIENT UNIDOSE [Concomitant]
     Active Substance: LATANOPROST
     Dosage: 1 DOSAGE FORMS DAILY;
     Route: 047
  9. LOXEN L P 50 MG, G?LULE ? LIB?RATION PROLONG?E [Concomitant]
     Active Substance: NICARDIPINE HYDROCHLORIDE
     Dosage: 100 MILLIGRAM DAILY;
     Route: 048
     Dates: end: 20181224
  10. REPAGLINIDE ARROW GENERIQUES 2 MG, COMPRIM? [Concomitant]
     Dosage: 8 MILLIGRAM DAILY;
     Route: 048
     Dates: end: 20181224
  11. ACEBUTOLOL ARROW 200 MG, COMPRIM? PELLICUL? [Concomitant]
     Dosage: 400 MILLIGRAM DAILY;
     Route: 048
  12. BROMAZEPAM [Concomitant]
     Active Substance: BROMAZEPAM
     Route: 048
     Dates: end: 20181221
  13. LEVOTHYROX 25 MICROGRAMMES, COMPRIM? S?CABLE [Concomitant]
     Active Substance: LEVOTHYROXINE SODIUM
     Dosage: 25 MICROGRAM DAILY;
     Route: 048
     Dates: end: 20181224
  14. ESIDREX [Concomitant]
     Active Substance: HYDROCHLOROTHIAZIDE
     Dosage: 12.5 MILLIGRAM DAILY;
     Route: 048
     Dates: end: 20181221
  15. JANUMET [Concomitant]
     Active Substance: METFORMIN HYDROCHLORIDE\SITAGLIPTIN PHOSPHATE
     Dosage: 2 DOSAGE FORMS DAILY; FORM STRENGTH:50/1000MG
     Route: 048
     Dates: end: 20181224

REACTIONS (1)
  - Hallucination, visual [Recovered/Resolved]

NARRATIVE: CASE EVENT DATE: 20181218
